FAERS Safety Report 21433906 (Version 1)
Quarter: 2022Q4

REPORT INFORMATION
  Report Type: Report from Study
  Country: HN (occurrence: HN)
  Receive Date: 20221010
  Receipt Date: 20221010
  Transmission Date: 20230112
  Serious: Yes (Hospitalization)
  Sender: FDA-Public Use
  Company Number: HN-NOVARTISPH-NVSC2022HN227870

PATIENT
  Age: 69 Year
  Sex: Male

DRUGS (2)
  1. DIOVAN [Suspect]
     Active Substance: VALSARTAN
     Indication: Hypertension
     Dosage: 320 MG, QD (1/2 TABLET IN THE MORNING AND ? TABLET IN THE AFTERNOON)
     Route: 048
     Dates: start: 2019, end: 20220909
  2. EXFORGE [Suspect]
     Active Substance: AMLODIPINE BESYLATE\VALSARTAN
     Indication: Hypertension
     Dosage: 5/320 MG, QD
     Route: 048
     Dates: start: 20220909

REACTIONS (4)
  - Hernia [Unknown]
  - Hypertension [Unknown]
  - Wrong technique in product usage process [Unknown]
  - Drug ineffective [Unknown]

NARRATIVE: CASE EVENT DATE: 20220901
